FAERS Safety Report 8665021 (Version 2)
Quarter: 2013Q4

REPORT INFORMATION
  Report Type: Spontaneous
  Country: US (occurrence: US)
  Receive Date: 20120715
  Receipt Date: 20131101
  Transmission Date: 20140711
  Serious: No
  Sender: FDA-Public Use
  Company Number: US-009507513-1207USA002187

PATIENT
  Sex: Male

DRUGS (3)
  1. PEGINTRON [Suspect]
     Indication: HEPATITIS C
     Dosage: UNK, QW
     Route: 058
     Dates: start: 20120604, end: 20120623
  2. TELAPREVIR [Suspect]
     Indication: HEPATITIS C
     Dosage: UNK
     Dates: end: 20120623
  3. RIBASPHERE [Suspect]
     Indication: HEPATITIS C
     Dosage: UNK

REACTIONS (6)
  - Thirst [Unknown]
  - Dysphagia [Unknown]
  - Disorientation [Unknown]
  - Confusional state [Unknown]
  - Anxiety [Unknown]
  - Disturbance in attention [Unknown]
